FAERS Safety Report 8167198-3 (Version None)
Quarter: 2012Q1

REPORT INFORMATION
  Report Type: 
  Country: None (occurrence: None)
  Receive Date: 20120227
  Receipt Date: 20120221
  Transmission Date: 20120608
  Serious: Yes (Other)
  Sender: FDA-Public Use
  Company Number: CA-JNJFOC-20120211891

PATIENT
  Sex: Female

DRUGS (1)
  1. LEVAQUIN [Suspect]
     Indication: SINUSITIS
     Dosage: 14 DAY COURSE
     Route: 065
     Dates: start: 20091001

REACTIONS (2)
  - TENDON RUPTURE [None]
  - LIGAMENT INJURY [None]
